FAERS Safety Report 13638869 (Version 1)
Quarter: 2017Q2

REPORT INFORMATION
  Report Type: Spontaneous
  Country: FR (occurrence: FR)
  Receive Date: 20170609
  Receipt Date: 20170609
  Transmission Date: 20170830
  Serious: Yes (Hospitalization, Other)
  Sender: FDA-Public Use
  Company Number: FR-INDIVIOR LIMITED-INDV-102443-2017

PATIENT
  Age: 29 Year
  Sex: Male

DRUGS (3)
  1. OXYCODON [Suspect]
     Active Substance: OXYCODONE
     Indication: PRODUCT USED FOR UNKNOWN INDICATION
     Dosage: UNK
     Route: 048
     Dates: start: 20170503, end: 20170503
  2. SUBUTEX [Suspect]
     Active Substance: BUPRENORPHINE HYDROCHLORIDE
     Indication: PRODUCT USED FOR UNKNOWN INDICATION
     Dosage: UNK
     Route: 048
     Dates: start: 20170503, end: 20170503
  3. CANNABIS SATIVA [Suspect]
     Active Substance: CANNABIS SATIVA SUBSP. SATIVA FLOWERING TOP
     Indication: PRODUCT USED FOR UNKNOWN INDICATION
     Dosage: UNKNOWN
     Route: 065

REACTIONS (5)
  - Drug use disorder [Recovered/Resolved]
  - Hallucination [Recovered/Resolved]
  - Aggression [Recovered/Resolved]
  - Intentional product use issue [Recovered/Resolved]
  - Drug screen positive [Recovered/Resolved]

NARRATIVE: CASE EVENT DATE: 201705
